FAERS Safety Report 20722540 (Version 1)
Quarter: 2022Q2

REPORT INFORMATION
  Report Type: Spontaneous
  Country: CN (occurrence: CN)
  Receive Date: 20220418
  Receipt Date: 20220418
  Transmission Date: 20220720
  Serious: Yes (Other)
  Sender: FDA-Public Use
  Company Number: CN-009507513-2204CHN005005

PATIENT
  Age: 69 Year
  Sex: Female
  Weight: 50 kg

DRUGS (3)
  1. CILASTATIN SODIUM\IMIPENEM [Suspect]
     Active Substance: CILASTATIN SODIUM\IMIPENEM
     Indication: Infection
     Dosage: 1 G, Q6H (ALSO REPORTED AS SIX TIMES PER DAY); FORMULATION: POWDER FOR INJECTION
     Route: 041
     Dates: start: 20220305, end: 20220312
  2. SODIUM CHLORIDE [Concomitant]
     Active Substance: SODIUM CHLORIDE
     Indication: Infection
     Dosage: 100ML Q6H
     Route: 041
     Dates: start: 20220305, end: 20220312
  3. VORICONAZOLE [Concomitant]
     Active Substance: VORICONAZOLE
     Indication: Infection
     Dosage: 0.2 G Q12H
     Route: 041
     Dates: start: 20220308, end: 20220312

REACTIONS (4)
  - Delirium [Recovering/Resolving]
  - Agitation [Recovering/Resolving]
  - Disorganised speech [Recovering/Resolving]
  - Mental disorder [Recovering/Resolving]

NARRATIVE: CASE EVENT DATE: 20220311
